FAERS Safety Report 5291114-5 (Version None)
Quarter: 2007Q2

REPORT INFORMATION
  Report Type: 
  Country: None (occurrence: None)
  Receive Date: 20070402
  Receipt Date: 20070320
  Transmission Date: 20071010
  Serious: Yes (Hospitalization)
  Sender: FDA-Public Use
  Company Number: 2007-00785

PATIENT
  Age: 64 Year

DRUGS (6)
  1. VELCADE [Suspect]
     Indication: MULTIPLE MYELOMA
  2. DOXORUBICIN HCL [Suspect]
     Indication: MULTIPLE MYELOMA
  3. DEXAMETHASONE [Suspect]
     Indication: MULTIPLE MYELOMA
  4. CIPROFLOXACIN HCL [Concomitant]
  5. ACYCLOVIR [Concomitant]
  6. PASPERTIN (METOCLOPRAMIDE HYDROCHLORIDE) [Concomitant]

REACTIONS (1)
  - BRONCHITIS [None]
